FAERS Safety Report 8178132-4 (Version None)
Quarter: 2012Q1

REPORT INFORMATION
  Report Type: 
  Country: None (occurrence: None)
  Receive Date: 20120301
  Receipt Date: 20120222
  Transmission Date: 20120608
  Serious: Yes (Hospitalization)
  Sender: FDA-Public Use
  Company Number: IE-JNJFOC-20120212192

PATIENT
  Age: 77 Year
  Sex: Female

DRUGS (10)
  1. XARELTO [Suspect]
     Route: 048
  2. ENOXAPARIN SODIUM [Concomitant]
  3. XARELTO [Suspect]
     Indication: HIP ARTHROPLASTY
     Route: 048
  4. XARELTO [Suspect]
     Indication: THROMBOSIS PROPHYLAXIS
     Route: 048
  5. DICLOFENAC SODIUM [Concomitant]
  6. WHOLE BLOOD [Concomitant]
     Indication: HAEMOGLOBIN DECREASED
  7. ENOXAPARIN SODIUM [Concomitant]
     Indication: HIP ARTHROPLASTY
  8. XARELTO [Suspect]
     Route: 048
  9. ENOXAPARIN SODIUM [Concomitant]
     Indication: THROMBOSIS PROPHYLAXIS
  10. ENOXAPARIN SODIUM [Concomitant]

REACTIONS (2)
  - OEDEMA PERIPHERAL [None]
  - CONTUSION [None]
